FAERS Safety Report 23668725 (Version 1)
Quarter: 2024Q1

REPORT INFORMATION
  Report Type: Report from Study
  Country: GB (occurrence: GB)
  Receive Date: 20240325
  Receipt Date: 20240325
  Transmission Date: 20240410
  Serious: Yes (Other)
  Sender: FDA-Public Use
  Company Number: GB-002147023-NVSC2023GB266910

PATIENT
  Sex: Female

DRUGS (3)
  1. SIPONIMOD [Suspect]
     Active Substance: SIPONIMOD
     Indication: Secondary progressive multiple sclerosis
     Dosage: 0.5 MG, QD
     Route: 065
     Dates: start: 20231211
  2. SIPONIMOD [Suspect]
     Active Substance: SIPONIMOD
     Indication: Multiple sclerosis
     Dosage: 02 MG, QD
     Route: 048
     Dates: start: 20231211
  3. SIPONIMOD [Suspect]
     Active Substance: SIPONIMOD
     Dosage: 02 MG, QD
     Route: 048

REACTIONS (5)
  - Hemiplegia [Unknown]
  - Headache [Not Recovered/Not Resolved]
  - Abdominal pain upper [Not Recovered/Not Resolved]
  - Foreign body sensation in eyes [Unknown]
  - Memory impairment [Unknown]

NARRATIVE: CASE EVENT DATE: 20231213
